FAERS Safety Report 4328648-3 (Version None)
Quarter: 2004Q2

REPORT INFORMATION
  Report Type: 
  Country: None (occurrence: None)
  Receive Date: 20040401
  Receipt Date: 20040322
  Transmission Date: 20050107
  Serious: Yes (Other)
  Sender: FDA-Public Use
  Company Number: PHEH2004US03404

PATIENT
  Sex: Male

DRUGS (1)
  1. ZOMETA [Suspect]
     Route: 042
     Dates: start: 20030201

REACTIONS (3)
  - BONE DEBRIDEMENT [None]
  - OSTEOMYELITIS [None]
  - PAIN [None]
